FAERS Safety Report 23439963 (Version 2)
Quarter: 2024Q1

REPORT INFORMATION
  Report Type: Spontaneous
  Country: CH (occurrence: CH)
  Receive Date: 20240124
  Receipt Date: 20240202
  Transmission Date: 20240410
  Serious: Yes (Hospitalization, Other)
  Sender: FDA-Public Use
  Company Number: CH-PFIZER INC-PV202400004416

PATIENT
  Age: 74 Year
  Sex: Male
  Weight: 74.9 kg

DRUGS (12)
  1. XELJANZ [Suspect]
     Active Substance: TOFACITINIB CITRATE
     Indication: Polyarthritis
     Dosage: 5 MG, 2X/DAY
     Route: 048
     Dates: start: 20160913, end: 20231203
  2. XELJANZ [Suspect]
     Active Substance: TOFACITINIB CITRATE
     Indication: Rheumatoid arthritis
  3. METHOTREXATE [Suspect]
     Active Substance: METHOTREXATE
     Indication: Polyarthritis
     Dosage: 12.5 MG, WEEKLY
     Route: 058
     Dates: start: 20230714, end: 20231203
  4. METHOTREXATE [Suspect]
     Active Substance: METHOTREXATE
     Indication: Rheumatoid arthritis
  5. FOLIC ACID [Concomitant]
     Active Substance: FOLIC ACID
     Indication: Vitamin supplementation
     Dosage: 5 MG, 2X/DAY
     Route: 048
     Dates: end: 20231203
  6. CALCIUM CARBONATE\CHOLECALCIFEROL [Concomitant]
     Active Substance: CALCIUM CARBONATE\CHOLECALCIFEROL
     Indication: Osteoporosis
     Dosage: UNK, 1X/DAY (500 MG / 800 IE ) (1-0-0-0 )
     Route: 048
  7. PREDNISOLONE [Concomitant]
     Active Substance: PREDNISOLONE
     Indication: Arthritis
     Dosage: 5 MG, AS NEEDED
     Route: 048
  8. NOVALGIN (METAMIZOLE SODIUM) [Concomitant]
     Active Substance: METAMIZOLE SODIUM
     Dosage: 500 MG, AS NEEDED
     Route: 048
  9. HYALURONATE SODIUM [Concomitant]
     Active Substance: HYALURONATE SODIUM
     Route: 047
  10. CELECOXIB [Concomitant]
     Active Substance: CELECOXIB
     Indication: Pain
     Dosage: 200 MG, AS NEEDED
     Route: 048
  11. MOMETASON SPIRIG HC [Concomitant]
     Dosage: 0.05 MG, DAILY
     Route: 045
  12. DICLOFENAC EPOLAMINE\HEPARIN SODIUM [Concomitant]
     Active Substance: DICLOFENAC EPOLAMINE\HEPARIN SODIUM
     Dosage: UNK, DAILY (181 MG/ 5600 UI)
     Route: 062

REACTIONS (7)
  - Immune-mediated encephalitis [Recovered/Resolved]
  - JC virus infection [Recovered/Resolved]
  - Meningitis aseptic [Recovered/Resolved]
  - Pachymeningitis [Recovered/Resolved]
  - COVID-19 [Recovering/Resolving]
  - Pneumonia [Recovered/Resolved]
  - Fall [Unknown]

NARRATIVE: CASE EVENT DATE: 20231201
